FAERS Safety Report 25458515 (Version 1)
Quarter: 2025Q2

REPORT INFORMATION
  Report Type: Spontaneous
  Country: US (occurrence: US)
  Receive Date: 20250620
  Receipt Date: 20250620
  Transmission Date: 20250717
  Serious: No
  Sender: DAIICHI
  Company Number: US-DAIICHI SANKYO, INC.-DS-2025-148317-USAA

PATIENT
  Sex: Female

DRUGS (8)
  1. BENICAR [Suspect]
     Active Substance: OLMESARTAN MEDOXOMIL
     Indication: Product used for unknown indication
     Route: 065
  2. TYVASO [Suspect]
     Active Substance: TREPROSTINIL
     Indication: Pulmonary arterial hypertension
     Dates: start: 202504
  3. TYVASO [Suspect]
     Active Substance: TREPROSTINIL
  4. TYVASO [Suspect]
     Active Substance: TREPROSTINIL
     Dates: start: 202505, end: 202505
  5. TYVASO [Suspect]
     Active Substance: TREPROSTINIL
     Dates: start: 202505, end: 20250602
  6. TYVASO [Suspect]
     Active Substance: TREPROSTINIL
     Dates: start: 20250602
  7. TYVASO [Suspect]
     Active Substance: TREPROSTINIL
  8. TYVASO [Suspect]
     Active Substance: TREPROSTINIL

REACTIONS (3)
  - Cough [Recovering/Resolving]
  - Diarrhoea [Unknown]
  - Hypotension [Unknown]
